FAERS Safety Report 8299067-2 (Version None)
Quarter: 2012Q2

REPORT INFORMATION
  Report Type: 
  Country: None (occurrence: None)
  Receive Date: 20120419
  Receipt Date: 20120413
  Transmission Date: 20120825
  Serious: Yes (Hospitalization)
  Sender: FDA-Public Use
  Company Number: US-BAYER-2011-006933

PATIENT
  Age: 19 Year
  Sex: Female
  Weight: 61.678 kg

DRUGS (2)
  1. YAZ [Suspect]
     Indication: PREMENSTRUAL SYNDROME
     Dosage: UNK
     Dates: start: 20071201, end: 20090801
  2. IBUPROFEN (ADVIL) [Concomitant]
     Indication: HEADACHE
     Dosage: 2 TABS AS NEEDED, UNK

REACTIONS (7)
  - ANXIETY [None]
  - FEAR [None]
  - CHOLECYSTITIS CHRONIC [None]
  - PAIN [None]
  - PSYCHOLOGICAL TRAUMA [None]
  - EMOTIONAL DISTRESS [None]
  - CHOLECYSTECTOMY [None]
